FAERS Safety Report 9506940 (Version 1)
Quarter: 2013Q3

REPORT INFORMATION
  Report Type: Spontaneous
  Country: BR (occurrence: None)
  Receive Date: 20130904
  Receipt Date: 20130904
  Transmission Date: 20140515
  Serious: Yes (Hospitalization)
  Sender: FDA-Public Use
  Company Number: DSJ-2013-18793

PATIENT
  Age: 81 Year
  Sex: Female
  Weight: 60 kg

DRUGS (1)
  1. BENICAR ANLO [Suspect]
     Indication: HYPERTENSION
     Route: 048
     Dates: end: 201308

REACTIONS (2)
  - Drug administration error [None]
  - Infarction [None]
